FAERS Safety Report 8968299 (Version 1)
Quarter: 2012Q4

REPORT INFORMATION
  Report Type: Spontaneous
  Country: US (occurrence: None)
  Receive Date: 20121214
  Receipt Date: 20121214
  Transmission Date: 20130627
  Serious: Yes (Hospitalization)
  Sender: FDA-Public Use
  Company Number: None

PATIENT
  Age: 60 Year
  Sex: Male
  Weight: 84.8 kg

DRUGS (2)
  1. BEVACIZUMAB [Suspect]
     Indication: GLIOBLASTOMA
     Dosage: 10 mg/kg  Days  1  +  15   IV
     Route: 042
     Dates: start: 20121102, end: 20121130
  2. ETOPOSIDE [Suspect]
     Dosage: 50 mg/m2   Days 1-21   Oral
     Route: 048
     Dates: start: 20121116, end: 20121206

REACTIONS (4)
  - Febrile neutropenia [None]
  - Lymphopenia [None]
  - White blood cell count decreased [None]
  - Platelet count decreased [None]
